FAERS Safety Report 11069039 (Version 2)
Quarter: 2016Q1

REPORT INFORMATION
  Report Type: Spontaneous
  Country: SE (occurrence: SE)
  Receive Date: 20150427
  Receipt Date: 20160114
  Transmission Date: 20160525
  Serious: Yes (Death)
  Sender: FDA-Public Use
  Company Number: SE-TEVA-556223ISR

PATIENT
  Age: 71 Year
  Sex: Female

DRUGS (4)
  1. LOSARTAN. [Suspect]
     Active Substance: LOSARTAN
     Route: 048
  2. AVELOX [Suspect]
     Active Substance: MOXIFLOXACIN HYDROCHLORIDE
     Route: 065
  3. KORTISON [Suspect]
     Active Substance: CORTISONE ACETATE
     Route: 065
  4. CEFOTAXIME [Suspect]
     Active Substance: CEFOTAXIME SODIUM
     Route: 065

REACTIONS (2)
  - Toxic epidermal necrolysis [Fatal]
  - Stevens-Johnson syndrome [Fatal]
